FAERS Safety Report 9618621 (Version 3)
Quarter: 2013Q4

REPORT INFORMATION
  Report Type: Spontaneous
  Country: US (occurrence: US)
  Receive Date: 20131014
  Receipt Date: 20131113
  Transmission Date: 20140711
  Serious: No
  Sender: FDA-Public Use
  Company Number: US-PFIZER INC-2013293379

PATIENT
  Sex: Female

DRUGS (5)
  1. NORVASC [Suspect]
     Indication: HYPERTENSION
     Dosage: 5 MG, DAILY
     Route: 048
     Dates: start: 20131002, end: 20131010
  2. METOPROLOL [Concomitant]
     Indication: HYPERTENSION
     Dosage: UNK
  3. LISINOPRIL [Concomitant]
     Indication: HYPERTENSION
     Dosage: UNK
  4. ELMIRON [Concomitant]
     Indication: CYSTITIS INTERSTITIAL
     Dosage: UNK
  5. SYNTHROID [Concomitant]
     Indication: THYROID DISORDER
     Dosage: UNK

REACTIONS (1)
  - Acne cystic [Recovering/Resolving]
